FAERS Safety Report 11681007 (Version 2)
Quarter: 2015Q4

REPORT INFORMATION
  Report Type: Spontaneous
  Country: FR (occurrence: FR)
  Receive Date: 20151029
  Receipt Date: 20151105
  Transmission Date: 20160304
  Serious: Yes (Death)
  Sender: FDA-Public Use
  Company Number: FR-ROCHE-1652122

PATIENT
  Age: 69 Year
  Sex: Female

DRUGS (8)
  1. CHLORAMBUCIL [Concomitant]
     Active Substance: CHLORAMBUCIL
     Dosage: CYCLE 2
     Route: 065
     Dates: start: 20091214
  2. MABTHERA [Suspect]
     Active Substance: RITUXIMAB
     Indication: LYMPHOMA
     Dosage: CYCLE 1
     Route: 042
     Dates: start: 20090928, end: 20091214
  3. MABTHERA [Suspect]
     Active Substance: RITUXIMAB
     Dosage: CYCLE 4
     Route: 042
     Dates: start: 20091019
  4. MABTHERA [Suspect]
     Active Substance: RITUXIMAB
     Dosage: CYCLE2
     Route: 042
     Dates: start: 20091005
  5. CHLORAMBUCIL [Concomitant]
     Active Substance: CHLORAMBUCIL
     Dosage: CYCLE 1
     Route: 065
     Dates: start: 20091116
  6. MABTHERA [Suspect]
     Active Substance: RITUXIMAB
     Dosage: MAINTENANCE CYCLE 1
     Route: 042
     Dates: start: 20091116
  7. MABTHERA [Suspect]
     Active Substance: RITUXIMAB
     Dosage: CYCLE 3
     Route: 042
     Dates: start: 20091012
  8. MABTHERA [Suspect]
     Active Substance: RITUXIMAB
     Dosage: MAINTENANCE CYCLE 2
     Route: 042
     Dates: end: 20091214

REACTIONS (3)
  - Hepatitis B [Fatal]
  - Liver transplant [Fatal]
  - Hepatitis fulminant [Fatal]

NARRATIVE: CASE EVENT DATE: 20091231
